FAERS Safety Report 9375179 (Version 2)
Quarter: 2013Q3

REPORT INFORMATION
  Report Type: Spontaneous
  Country: US (occurrence: US)
  Receive Date: 20130628
  Receipt Date: 20130821
  Transmission Date: 20140515
  Serious: Yes (Hospitalization)
  Sender: FDA-Public Use
  Company Number: US-MERCK-1306USA013079

PATIENT
  Age: 40 Year
  Sex: Female

DRUGS (3)
  1. SAPHRIS [Suspect]
     Indication: BIPOLAR DISORDER
     Dosage: 15 MG, ONCE DAILY
     Route: 060
     Dates: start: 201303, end: 20130618
  2. DEPAKOTE [Concomitant]
  3. HYDROXYZINE [Concomitant]

REACTIONS (3)
  - Pneumonia [Unknown]
  - Foreign body aspiration [Unknown]
  - Circumstance or information capable of leading to medication error [Unknown]
